FAERS Safety Report 6215047-2 (Version None)
Quarter: 2009Q2

REPORT INFORMATION
  Report Type: 
  Country: None (occurrence: None)
  Receive Date: 20090604
  Receipt Date: 20081212
  Transmission Date: 20091009
  Serious: No
  Sender: FDA-Public Use
  Company Number: US-ASTRAZENECA-2008UW27974

PATIENT
  Age: 47 Year
  Sex: Female

DRUGS (2)
  1. PRILOSEC [Suspect]
     Dosage: UNKNOWN
     Route: 048
     Dates: start: 20080608, end: 20081021
  2. NEXIUM [Suspect]
     Dosage: UNKNOWN
     Route: 048

REACTIONS (5)
  - ABDOMINAL DISCOMFORT [None]
  - CHEST PAIN [None]
  - DRUG INEFFECTIVE [None]
  - HEADACHE [None]
  - STRESS [None]
